FAERS Safety Report 5665063-4 (Version None)
Quarter: 2008Q1

REPORT INFORMATION
  Report Type: 
  Country: None (occurrence: None)
  Receive Date: 20080314
  Receipt Date: 20080307
  Transmission Date: 20080703
  Serious: Yes (Other)
  Sender: FDA-Public Use
  Company Number: JP-BOEHRINGER INGELHEIM GMBH, GERMANY-2008-BP-03574NB

PATIENT
  Age: 80 Year
  Sex: Male

DRUGS (1)
  1. PERSANTINE [Suspect]
     Indication: STENT PLACEMENT
     Route: 048

REACTIONS (1)
  - PANCYTOPENIA [None]
